FAERS Safety Report 5411801-5 (Version None)
Quarter: 2007Q3

REPORT INFORMATION
  Report Type: 
  Country: None (occurrence: None)
  Receive Date: 20070813
  Receipt Date: 20070806
  Transmission Date: 20080115
  Serious: Yes (Other)
  Sender: FDA-Public Use
  Company Number: PHBS2007BR13106

PATIENT
  Age: 64 Year
  Sex: Female
  Weight: 60 kg

DRUGS (8)
  1. DIOVAN [Suspect]
     Indication: HYPERTENSION
     Dosage: 80 MG, TID
     Route: 048
     Dates: start: 20020101
  2. MODURETIC 5-50 [Concomitant]
     Indication: HYPERTENSION
     Dosage: 25 MG, BID
     Route: 048
  3. SERTRALINE [Concomitant]
     Indication: DEPRESSION
     Dosage: 25 MG/DAY
     Route: 065
  4. SERTRALINE [Concomitant]
     Dosage: 50 MG/DAY
     Route: 065
  5. SERTRALINE [Concomitant]
     Dosage: 75 MG/DAY
     Route: 065
  6. SERTRALINE [Concomitant]
     Dosage: 100 MG/DAY
     Route: 065
  7. SERTRALINE [Concomitant]
     Dosage: 150 MG/DAY
     Route: 065
  8. SERTRALINE [Concomitant]
     Dosage: 175 MG/DAY
     Route: 065

REACTIONS (4)
  - DEPRESSION [None]
  - EATING DISORDER [None]
  - FATIGUE [None]
  - STOMACH DISCOMFORT [None]
